FAERS Safety Report 10358185 (Version 1)
Quarter: 2014Q3

REPORT INFORMATION
  Report Type: Spontaneous
  Country: GB (occurrence: GB)
  Receive Date: 20140801
  Receipt Date: 20140801
  Transmission Date: 20150326
  Serious: Yes (Other)
  Sender: FDA-Public Use
  Company Number: GB-JNJFOC-20140715746

PATIENT
  Sex: Female

DRUGS (1)
  1. PARACETAMOL [Suspect]
     Active Substance: ACETAMINOPHEN
     Indication: MYALGIA
     Dosage: 2 TO 4 TIMES A DAY
     Route: 048

REACTIONS (6)
  - Dysgeusia [Unknown]
  - Dizziness [Unknown]
  - Skin reaction [Unknown]
  - Chills [Unknown]
  - Nausea [Unknown]
  - Heart rate increased [Unknown]
